FAERS Safety Report 17487098 (Version 1)
Quarter: 2020Q1

REPORT INFORMATION
  Report Type: Report from Study
  Country: JP (occurrence: JP)
  Receive Date: 20200303
  Receipt Date: 20200303
  Transmission Date: 20200409
  Serious: Yes (Hospitalization)
  Sender: FDA-Public Use
  Company Number: JP-ELI_LILLY_AND_COMPANY-JP201906013664

PATIENT
  Age: 57 Year
  Sex: Female
  Weight: 47 kg

DRUGS (7)
  1. BARICITINIB [Suspect]
     Active Substance: BARICITINIB
     Dosage: 2 MG, DAILY
     Route: 048
     Dates: start: 20190505, end: 20190523
  2. FOLIAMIN [Concomitant]
     Active Substance: FOLIC ACID
     Indication: PROPHYLAXIS
  3. BARICITINIB [Suspect]
     Active Substance: BARICITINIB
     Indication: RHEUMATOID ARTHRITIS
     Dosage: 2 MG, DAILY
     Route: 048
     Dates: start: 20181207, end: 20190424
  4. METHOTREXATE. [Concomitant]
     Active Substance: METHOTREXATE
     Indication: RHEUMATOID ARTHRITIS
     Dosage: 6 MG, WEEKLY (1/W)
     Route: 048
  5. CRESTOR [Concomitant]
     Active Substance: ROSUVASTATIN CALCIUM
     Indication: HYPERLIPIDAEMIA
  6. LOXONIN [Concomitant]
     Active Substance: LOXOPROFEN SODIUM
     Indication: RHEUMATOID ARTHRITIS
  7. PREDNISOLONE. [Concomitant]
     Active Substance: PREDNISOLONE
     Indication: RHEUMATOID ARTHRITIS
     Route: 048

REACTIONS (1)
  - Pericarditis [Not Recovered/Not Resolved]

NARRATIVE: CASE EVENT DATE: 20190513
